FAERS Safety Report 8667408 (Version 3)
Quarter: 2013Q1

REPORT INFORMATION
  Report Type: Spontaneous
  Country: US (occurrence: None)
  Receive Date: 20120612
  Receipt Date: 20121231
  Transmission Date: 20140127
  Serious: Yes (Life-Threatening, Hospitalization)
  Sender: FDA-Public Use
  Company Number: P0581

PATIENT
  Age: 71 Year
  Sex: Male
  Weight: 83.4 kg

DRUGS (7)
  1. PROVENGE [Suspect]
     Indication: PROSTATE CANCER METASTATIC
     Dosage: INTRAVENOUS
     Route: 042
     Dates: start: 20120427, end: 20120427
  2. AMLODIPINE [Concomitant]
  3. COZAAR [Concomitant]
  4. POTASSIUM CHLORIDE [Concomitant]
  5. CALCIUM/VIT D (CALCIUM CARBONATE, VITAMIN D NOS) [Concomitant]
  6. LUPRON [Concomitant]
  7. FISH OIL (FISH OIL) [Concomitant]

REACTIONS (11)
  - Loss of consciousness [None]
  - Device occlusion [None]
  - Acute myocardial infarction [None]
  - Coronary artery disease [None]
  - Cerebrovascular accident [None]
  - Coronary artery embolism [None]
  - Lymphadenopathy mediastinal [None]
  - Coagulopathy [None]
  - Atrial thrombosis [None]
  - Lymphadenopathy [None]
  - Atrial fibrillation [None]
